FAERS Safety Report 10626949 (Version 1)
Quarter: 2014Q4

REPORT INFORMATION
  Report Type: Spontaneous
  Country: US (occurrence: US)
  Receive Date: 20141204
  Receipt Date: 20141204
  Transmission Date: 20150529
  Serious: No
  Sender: FDA-Public Use
  Company Number: US-009507513-1411USA012342

PATIENT
  Sex: Male

DRUGS (2)
  1. NASONEX [Suspect]
     Active Substance: MOMETASONE FUROATE
     Dosage: UNK, HS
  2. CLARITIN [Suspect]
     Active Substance: LORATADINE
     Dosage: UNK, 24 HOURS AT NIGHT
     Route: 048

REACTIONS (2)
  - Drug effect incomplete [Unknown]
  - Somnolence [Unknown]
